FAERS Safety Report 11302765 (Version 1)
Quarter: 2015Q3

REPORT INFORMATION
  Report Type: Spontaneous
  Country: US (occurrence: None)
  Receive Date: 20150723
  Receipt Date: 20150723
  Transmission Date: 20151125
  Serious: No
  Sender: FDA-Public Use
  Company Number: None

PATIENT
  Age: 50 Year
  Sex: Female
  Weight: 56.7 kg

DRUGS (2)
  1. SYNDROID [Concomitant]
  2. SUDOGEST PE [Suspect]
     Active Substance: PHENYLEPHRINE HYDROCHLORIDE
     Indication: PULMONARY CONGESTION
     Dosage: 1 PILL, ONCE DAILY, TAKEN BY MOUTH
     Route: 048
     Dates: start: 20150717, end: 20150719

REACTIONS (5)
  - Dizziness [None]
  - Ear discomfort [None]
  - Head discomfort [None]
  - Tinnitus [None]
  - Vertigo [None]

NARRATIVE: CASE EVENT DATE: 20150719
